FAERS Safety Report 4476455-3 (Version None)
Quarter: 2004Q4

REPORT INFORMATION
  Report Type: 
  Country: None (occurrence: None)
  Receive Date: 20041012
  Receipt Date: 20041001
  Transmission Date: 20050328
  Serious: Yes (Hospitalization)
  Sender: FDA-Public Use
  Company Number: 209401

PATIENT
  Age: 39 Year
  Sex: Female
  Weight: 100 kg

DRUGS (20)
  1. XOLAIR [Suspect]
     Indication: ASTHMA
     Dosage: 300 MG, Q2W, SUBCUTANEOUS
     Route: 058
     Dates: start: 20031107
  2. LEVORA(LEVONORGESTREL, ETHINYL ESTRADIOL) [Suspect]
     Indication: CONTRACEPTION
  3. PREDNISONE [Concomitant]
  4. THEO-24 (THEOPHYLLINE) [Concomitant]
  5. SINGULAIR [Concomitant]
  6. PREVACID [Concomitant]
  7. CLARINEX [Concomitant]
  8. WELLBUTRIN [Concomitant]
  9. EFFEXOR XR [Concomitant]
  10. ADVAIR (SALMETEROL XINAFOATE, FLUTICASONE PROPIONATE) [Concomitant]
  11. ALBUTEROL (ALBUTEROL SULFATE, ALBUTEROL) [Concomitant]
  12. ATROVENT [Concomitant]
  13. NASONEX [Concomitant]
  14. FOSAMAX [Concomitant]
  15. AMBIEN [Concomitant]
  16. CLONAZEPAM [Concomitant]
  17. VERAPAMIL [Concomitant]
  18. TRAMADOL HCL [Concomitant]
  19. HYDROCORTISONE [Concomitant]
  20. METROLOTION (METRONIDAZOLE) [Concomitant]

REACTIONS (1)
  - PULMONARY EMBOLISM [None]
